FAERS Safety Report 20590648 (Version 2)
Quarter: 2022Q2

REPORT INFORMATION
  Report Type: Report from Study
  Country: US (occurrence: US)
  Receive Date: 20220314
  Receipt Date: 20220404
  Transmission Date: 20220721
  Serious: Yes (Hospitalization, Other)
  Sender: FDA-Public Use
  Company Number: US-VERTEX PHARMACEUTICALS-2022-003496

PATIENT
  Age: 19 Year
  Sex: Male
  Weight: 60.1 kg

DRUGS (31)
  1. TRIKAFTA [Suspect]
     Active Substance: ELEXACAFTOR\IVACAFTOR\TEZACAFTOR
     Indication: Cystic fibrosis
     Dosage: 2 ORANGE TAB AM; 1 BLUE TAB PM
     Route: 048
     Dates: start: 20200115
  2. TRIKAFTA [Suspect]
     Active Substance: ELEXACAFTOR\IVACAFTOR\TEZACAFTOR
     Dosage: 2 ORANGE TABS IN AM TWICE WEEKLY (MONDAY AND THURDAY), NO BLUE TAB
     Route: 048
     Dates: start: 20220224
  3. RITUXIMAB [Suspect]
     Active Substance: RITUXIMAB
     Dosage: UNK
     Route: 048
     Dates: start: 20220219
  4. ALBUTEROL SULFATE [Concomitant]
     Active Substance: ALBUTEROL SULFATE
  5. ALBUTEROL SULFATE [Concomitant]
     Active Substance: ALBUTEROL SULFATE
  6. CAYSTON [Concomitant]
     Active Substance: AZTREONAM
     Dosage: TWO ORANGE TABS IN AM; ONE BLUE TAB IN PM
     Route: 048
     Dates: start: 20200115
  7. CETIRIZINE HCL [Concomitant]
     Active Substance: CETIRIZINE HYDROCHLORIDE
  8. SODIUM CHLORIDE [Concomitant]
     Active Substance: SODIUM CHLORIDE
  9. OMEPRAZOLE [Concomitant]
     Active Substance: OMEPRAZOLE
  10. PULMOZYME [Concomitant]
     Active Substance: DORNASE ALFA
     Dosage: INHALE 2.5 MLS INTO THE LUNGS 2 TIMES DAILY
  11. SODIUM CHLORIDE [Concomitant]
     Active Substance: SODIUM CHLORIDE
  12. TRIAMCINOLONE [Concomitant]
     Active Substance: TRIAMCINOLONE
     Dosage: 55 MCG/AC
  13. URSODIOL [Concomitant]
     Active Substance: URSODIOL
     Dosage: NEBULIZER
  14. ZENPEP [Concomitant]
     Active Substance: PANCRELIPASE AMYLASE\PANCRELIPASE LIPASE\PANCRELIPASE PROTEASE
     Dosage: CAP 4000
  15. ZYRTEC [Concomitant]
     Active Substance: CETIRIZINE HYDROCHLORIDE
  16. DOCUSATE SODIUM [Concomitant]
     Active Substance: DOCUSATE SODIUM
     Dosage: 100 MG, TAKE 2 CAPSULES BY MOUTH 2 TIMES DAILY
  17. FAMOTIDINE [Concomitant]
     Active Substance: FAMOTIDINE
  18. PREDNISONE [Concomitant]
     Active Substance: PREDNISONE
     Dosage: 30 MG, 3 TABLETS BY MOUTH DAILY
  19. SENNA LAXATIVE [Concomitant]
     Active Substance: SENNOSIDES
     Indication: Constipation
     Dosage: 1 TABLET BY MOUTH NIGHTLY AS NEEDED
  20. CHOLECALCIFEROL [Concomitant]
     Active Substance: CHOLECALCIFEROL
  21. GLUCAGEN [Concomitant]
     Active Substance: GLUCAGON HYDROCHLORIDE
     Indication: Hypoglycaemia
     Dosage: 1 MILLIGRAM PER MILLILITRE, INJECT INTO MUSCLE AS NEEDED
     Route: 030
  22. GLUCAGEN [Concomitant]
     Active Substance: GLUCAGON HYDROCHLORIDE
     Indication: Diabetes mellitus
  23. LANTUS [Concomitant]
     Active Substance: INSULIN GLARGINE
     Dosage: 100 UNIT/ML, INJECT 15 UNITS INTO THE SKIN NIGHTLY
  24. SEMGLEE (INSULIN GLARGINE) [Concomitant]
     Active Substance: INSULIN GLARGINE
     Indication: Diabetes mellitus
     Dosage: 3 ML, INJECT UPTO 40 UNITS SUBQ DAILY BASED ON INSULIN DOSE SHEET
  25. HUMALOG [Concomitant]
     Active Substance: INSULIN LISPRO
     Dosage: 100 UNIT/ML INJECTION VIAL, INJECT -30 UNITS INTO THE SKIN 4 TIMES DAILY
  26. LEVAQUIN [Concomitant]
     Active Substance: LEVOFLOXACIN
     Dosage: 750 MG, 1 TABLET BY MOUTH DAILY
  27. XARELTO [Concomitant]
     Active Substance: RIVAROXABAN
     Dosage: 15 MG, TAKE 1 TABLET BY MOUTH 2 TIMES DAILY WITH MEALS FOR 21 DAYS
  28. BACTRIM [Concomitant]
     Active Substance: SULFAMETHOXAZOLE\TRIMETHOPRIM
     Dosage: 160 MG, TAKE 1 TABLET BY MOUTH TWICE A WEEK
  29. ADMELOG [Concomitant]
     Active Substance: INSULIN LISPRO
     Dosage: 100 UNIT/ML, INJECT UPTO 50 UNITS
  30. ALTERRA [Concomitant]
  31. SENOKOT [Concomitant]
     Active Substance: SENNOSIDES

REACTIONS (17)
  - Infective pulmonary exacerbation of cystic fibrosis [Not Recovered/Not Resolved]
  - Pneumonia [Not Recovered/Not Resolved]
  - Diffuse large B-cell lymphoma [Not Recovered/Not Resolved]
  - Chest discomfort [Unknown]
  - Throat tightness [Unknown]
  - Hypoxia [Unknown]
  - Pneumothorax [Unknown]
  - Bronchopulmonary aspergillosis allergic [Unknown]
  - Catheter site thrombosis [Unknown]
  - Steroid diabetes [Unknown]
  - Anxiety [Not Recovered/Not Resolved]
  - Vitamin E decreased [Unknown]
  - Fungal test positive [Unknown]
  - Wheezing [Unknown]
  - Hyperbilirubinaemia [Unknown]
  - Alanine aminotransferase increased [Unknown]
  - Aspartate aminotransferase increased [Unknown]

NARRATIVE: CASE EVENT DATE: 20220125
